FAERS Safety Report 9524303 (Version 2)
Quarter: 2013Q4

REPORT INFORMATION
  Report Type: Spontaneous
  Country: CA (occurrence: None)
  Receive Date: 20130912
  Receipt Date: 20131106
  Transmission Date: 20140711
  Serious: Yes (Other)
  Sender: FDA-Public Use
  Company Number: SYM-2013-10395

PATIENT
  Age: 15 Year
  Sex: Female

DRUGS (1)
  1. DOXYCYCLINE [Suspect]
     Indication: ACNE

REACTIONS (8)
  - Rash [None]
  - Myalgia [None]
  - Fatigue [None]
  - Swelling face [None]
  - Local swelling [None]
  - Local swelling [None]
  - Headache [None]
  - Mood altered [None]
